FAERS Safety Report 24667908 (Version 1)
Quarter: 2024Q4

REPORT INFORMATION
  Report Type: Spontaneous
  Country: AZ (occurrence: AZ)
  Receive Date: 20241127
  Receipt Date: 20241127
  Transmission Date: 20250115
  Serious: Yes (Other)
  Sender: NOVO NORDISK
  Company Number: AZ-NOVOPROD-1252756

PATIENT
  Age: 45 Year
  Sex: Female
  Weight: 75 kg

DRUGS (2)
  1. TRESIBA [Suspect]
     Active Substance: INSULIN DEGLUDEC
     Indication: Type 2 diabetes mellitus
     Dosage: 10 IU, QD
     Dates: start: 202405
  2. NOVORAPID [Suspect]
     Active Substance: INSULIN ASPART
     Indication: Type 2 diabetes mellitus
     Dosage: 32 IU, QD(3 TIMES A DAY 10/12/10 UNITS)
     Dates: start: 202405

REACTIONS (3)
  - Abortion spontaneous [Unknown]
  - Blood glucose increased [Unknown]
  - Maternal exposure during pregnancy [Unknown]
